FAERS Safety Report 8262029-5 (Version None)
Quarter: 2012Q2

REPORT INFORMATION
  Report Type: 
  Country: None (occurrence: None)
  Receive Date: 20120405
  Receipt Date: 20120327
  Transmission Date: 20120825
  Serious: Yes (Other)
  Sender: FDA-Public Use
  Company Number: US-ASTRAZENECA-2012SE12980

PATIENT
  Age: 61 Year
  Sex: Female

DRUGS (7)
  1. PRILOSEC [Suspect]
     Route: 048
  2. CALCIUM CARBONATE [Concomitant]
  3. NEXIUM [Suspect]
     Indication: GASTROOESOPHAGEAL REFLUX DISEASE
     Route: 048
  4. PEPSONDENT [Concomitant]
  5. CRESTOR [Suspect]
     Route: 048
  6. NEXIUM [Suspect]
     Route: 048
  7. NEXIUM [Suspect]
     Indication: HIATUS HERNIA
     Route: 048

REACTIONS (11)
  - FALL [None]
  - HEADACHE [None]
  - ABDOMINAL DISCOMFORT [None]
  - MUSCLE SPASMS [None]
  - STRESS [None]
  - MACULAR DEGENERATION [None]
  - MALAISE [None]
  - ABDOMINAL PAIN UPPER [None]
  - GASTRIC POLYPS [None]
  - BONE DENSITY DECREASED [None]
  - INTENTIONAL DRUG MISUSE [None]
